FAERS Safety Report 7690669-0 (Version None)
Quarter: 2011Q3

REPORT INFORMATION
  Report Type: 
  Country: None (occurrence: None)
  Receive Date: 20110818
  Receipt Date: 20110808
  Transmission Date: 20111222
  Serious: Yes (Death, Other)
  Sender: FDA-Public Use
  Company Number: JP-BRISTOL-MYERS SQUIBB COMPANY-15952716

PATIENT
  Age: 21 Year
  Sex: Male

DRUGS (4)
  1. ETOPOSIDE [Suspect]
     Indication: NEOPLASM
     Dosage: ON DAY 6,5,4,3
     Route: 042
  2. CISPLATIN [Suspect]
     Indication: NEOPLASM
     Dosage: STANDARD DOSE CISPLATIN BASED COMBINATION CHEMOTHERAPY
  3. CARBOPLATIN [Suspect]
     Indication: GERM CELL CANCER
     Dosage: ON DAY 6,5,4,3
     Route: 042
  4. IFOSFAMIDE [Suspect]
     Indication: NEOPLASM
     Dosage: 1DF:2G/M2,ON DAY 6,5,4,3
     Route: 042

REACTIONS (7)
  - NEOPLASM MALIGNANT [None]
  - RENAL IMPAIRMENT [None]
  - LEUKOPENIA [None]
  - PYREXIA [None]
  - THROMBOCYTOPENIA [None]
  - NAUSEA [None]
  - DECREASED APPETITE [None]
